FAERS Safety Report 17661454 (Version 3)
Quarter: 2020Q2

REPORT INFORMATION
  Report Type: Spontaneous
  Country: US (occurrence: US)
  Receive Date: 20200413
  Receipt Date: 20200615
  Transmission Date: 20200713
  Serious: No
  Sender: FDA-Public Use
  Company Number: US-VERTEX PHARMACEUTICALS-2020-007399

PATIENT
  Sex: Female

DRUGS (2)
  1. INSULIN [Concomitant]
     Active Substance: INSULIN NOS
     Dosage: DECREASED
  2. TRIKAFTA [Suspect]
     Active Substance: ELEXACAFTOR\IVACAFTOR\TEZACAFTOR
     Indication: CYSTIC FIBROSIS
     Dosage: 2 TABLETS IN MORNING AND 1 TABLET IN EVENING, BID
     Route: 048
     Dates: start: 20200114

REACTIONS (9)
  - Diarrhoea [Unknown]
  - Dizziness [Recovered/Resolved]
  - Blood glucose decreased [Unknown]
  - Abdominal distension [Unknown]
  - Headache [Not Recovered/Not Resolved]
  - Back pain [Recovered/Resolved]
  - Constipation [Not Recovered/Not Resolved]
  - Weight increased [Not Recovered/Not Resolved]
  - Abdominal discomfort [Not Recovered/Not Resolved]

NARRATIVE: CASE EVENT DATE: 2020
